FAERS Safety Report 6286270-6 (Version None)
Quarter: 2009Q3

REPORT INFORMATION
  Report Type: 
  Country: None (occurrence: None)
  Receive Date: 20090728
  Receipt Date: 20090715
  Transmission Date: 20100115
  Serious: Yes (Life-Threatening)
  Sender: FDA-Public Use
  Company Number: GB-PFIZER INC-2009225106

PATIENT
  Age: 56 Year

DRUGS (3)
  1. CHAMPIX [Suspect]
     Indication: SMOKING CESSATION THERAPY
     Dosage: 500 UG, UNK
     Route: 048
  2. AMITRIPTYLINE [Concomitant]
     Indication: DEPRESSION
     Dosage: 100 MG, UNK
     Route: 048
  3. IPRATROPIUM [Concomitant]
     Dosage: 20 UG, UNK
     Route: 055

REACTIONS (2)
  - ABDOMINAL PAIN [None]
  - INTENTIONAL OVERDOSE [None]
